FAERS Safety Report 7168849-2 (Version None)
Quarter: 2010Q4

REPORT INFORMATION
  Report Type: 
  Country: None (occurrence: None)
  Receive Date: 20101216
  Receipt Date: 20100303
  Transmission Date: 20110411
  Serious: No
  Sender: FDA-Public Use
  Company Number: US-AMGEN-KDL386535

PATIENT

DRUGS (8)
  1. ENBREL [Suspect]
     Indication: RHEUMATOID ARTHRITIS
     Dosage: 50 MG, QWK
     Route: 058
     Dates: start: 20071022
  2. METHOTREXATE [Concomitant]
     Dosage: 10 MG, QWK
     Route: 048
  3. FOLIC ACID [Concomitant]
  4. PREDNISONE [Concomitant]
  5. AMLODIPINE BESYLATE [Concomitant]
  6. HYDROCHLOROTHIAZIDE [Concomitant]
  7. ATENOLOL [Concomitant]
  8. LEVOTHYROXINE SODIUM [Concomitant]

REACTIONS (2)
  - TOOTH INFECTION [None]
  - TOOTHACHE [None]
